FAERS Safety Report 5417936-5 (Version None)
Quarter: 2007Q3

REPORT INFORMATION
  Report Type: 
  Country: None (occurrence: None)
  Receive Date: 20070815
  Receipt Date: 20070802
  Transmission Date: 20080115
  Serious: Yes (Hospitalization)
  Sender: FDA-Public Use
  Company Number: S07-FRA-03321-01

PATIENT
  Age: 78 Year
  Sex: Female

DRUGS (7)
  1. ESCITALOPRAM [Suspect]
     Indication: DEPRESSION
     Dates: start: 20050701, end: 20070701
  2. PANTOPRAZOLE SODIUM [Suspect]
     Indication: ULCER
     Dates: start: 20060101, end: 20070501
  3. PANTOPRAZOLE SODIUM [Suspect]
     Indication: ULCER
  4. CELECTOL [Concomitant]
  5. INDAPAMIDE [Concomitant]
  6. SIMVASTATIN [Concomitant]
  7. DIANTALVIC (DEXTROPROPDXYPHENE/PARACETAMOL) [Concomitant]

REACTIONS (1)
  - LIP OEDEMA [None]
